FAERS Safety Report 23243211 (Version 1)
Quarter: 2023Q4

REPORT INFORMATION
  Report Type: Report from Study
  Country: GB (occurrence: GB)
  Receive Date: 20231130
  Receipt Date: 20231130
  Transmission Date: 20240110
  Serious: Yes (Other)
  Sender: FDA-Public Use
  Company Number: GB-ALXN-A202112997

PATIENT
  Age: 45 Year
  Sex: Female

DRUGS (3)
  1. ULTOMIRIS [Suspect]
     Active Substance: RAVULIZUMAB-CWVZ
     Indication: Paroxysmal nocturnal haemoglobinuria
     Dosage: 3000 MG, Q2W
     Route: 065
     Dates: start: 20210913, end: 20210927
  2. ULTOMIRIS [Suspect]
     Active Substance: RAVULIZUMAB-CWVZ
     Dosage: 3000 MG, 8 WEEKLY
     Route: 042
     Dates: start: 20211125
  3. SOLIRIS [Suspect]
     Active Substance: ECULIZUMAB
     Indication: Paroxysmal nocturnal haemoglobinuria
     Dosage: UNK
     Route: 065

REACTIONS (14)
  - Haemoglobin abnormal [Unknown]
  - Lower respiratory tract infection [Unknown]
  - Vein rupture [Unknown]
  - Poor venous access [Unknown]
  - Ear infection [Not Recovered/Not Resolved]
  - Lethargy [Unknown]
  - Cough [Not Recovered/Not Resolved]
  - Oropharyngeal pain [Unknown]
  - Eustachian tube obstruction [Not Recovered/Not Resolved]
  - Feeling hot [Unknown]
  - Illness [Unknown]
  - Polydipsia [Unknown]
  - Off label use [Unknown]
  - Fatigue [Not Recovered/Not Resolved]

NARRATIVE: CASE EVENT DATE: 20211122
